FAERS Safety Report 20089145 (Version 15)
Quarter: 2023Q4

REPORT INFORMATION
  Report Type: Report from Study
  Country: JP (occurrence: JP)
  Receive Date: 20211119
  Receipt Date: 20231107
  Transmission Date: 20240110
  Serious: Yes (Death, Hospitalization, Other)
  Sender: FDA-Public Use
  Company Number: JP-BRISTOL-MYERS SQUIBB COMPANY-BMS-2020-097174

PATIENT
  Age: 67 Year
  Sex: Male
  Weight: 78 kg

DRUGS (25)
  1. YERVOY [Suspect]
     Active Substance: IPILIMUMAB
     Indication: Metastatic renal cell carcinoma
     Dosage: 1 MG/KG?78KG
     Route: 041
     Dates: start: 20201005, end: 20201005
  2. YERVOY [Suspect]
     Active Substance: IPILIMUMAB
     Dosage: 1MG/KG,?78.0KG
     Route: 041
     Dates: start: 20201026, end: 20201026
  3. YERVOY [Suspect]
     Active Substance: IPILIMUMAB
     Dosage: 1MG/KG? 74.0KG
     Route: 041
     Dates: start: 20201221, end: 20201221
  4. YERVOY [Suspect]
     Active Substance: IPILIMUMAB
     Dosage: 1MG/KG,?77.0KG
     Route: 041
     Dates: start: 20210114, end: 20210114
  5. OPDIVO [Suspect]
     Active Substance: NIVOLUMAB
     Indication: Metastatic renal cell carcinoma
     Route: 041
     Dates: start: 20201005, end: 20201005
  6. OPDIVO [Suspect]
     Active Substance: NIVOLUMAB
     Route: 041
     Dates: start: 20201026, end: 20201026
  7. OPDIVO [Suspect]
     Active Substance: NIVOLUMAB
     Route: 041
     Dates: start: 20201221, end: 20201221
  8. OPDIVO [Suspect]
     Active Substance: NIVOLUMAB
     Route: 041
     Dates: start: 20210114, end: 20210114
  9. OPDIVO [Suspect]
     Active Substance: NIVOLUMAB
     Route: 041
     Dates: start: 20210325, end: 20210325
  10. OPDIVO [Suspect]
     Active Substance: NIVOLUMAB
     Route: 041
     Dates: start: 20210408, end: 20210408
  11. OPDIVO [Suspect]
     Active Substance: NIVOLUMAB
     Route: 041
     Dates: start: 20210422, end: 20210422
  12. OPDIVO [Suspect]
     Active Substance: NIVOLUMAB
     Route: 041
     Dates: start: 20210506, end: 20210506
  13. OPDIVO [Suspect]
     Active Substance: NIVOLUMAB
     Route: 041
     Dates: start: 20210520, end: 20210520
  14. OPDIVO [Suspect]
     Active Substance: NIVOLUMAB
     Route: 041
     Dates: start: 20210603, end: 20210603
  15. OPDIVO [Suspect]
     Active Substance: NIVOLUMAB
     Route: 041
     Dates: start: 20210617, end: 20210617
  16. OPDIVO [Suspect]
     Active Substance: NIVOLUMAB
     Route: 041
     Dates: start: 20210701, end: 20210701
  17. OPDIVO [Suspect]
     Active Substance: NIVOLUMAB
     Route: 041
     Dates: start: 20210729, end: 20210729
  18. OPDIVO [Suspect]
     Active Substance: NIVOLUMAB
     Route: 041
     Dates: start: 20210909, end: 20210909
  19. OPDIVO [Suspect]
     Active Substance: NIVOLUMAB
     Route: 041
     Dates: start: 20210921, end: 20210921
  20. ALLOPURINOL [Suspect]
     Active Substance: ALLOPURINOL
     Indication: Rash
     Route: 048
     Dates: start: 20211021
  21. MINOCYCLINE HYDROCHLORIDE [Suspect]
     Active Substance: MINOCYCLINE HYDROCHLORIDE
     Indication: Rash
     Route: 048
     Dates: start: 20211021
  22. MINOCYCLINE HYDROCHLORIDE [Suspect]
     Active Substance: MINOCYCLINE HYDROCHLORIDE
  23. PREDONINE [Suspect]
     Active Substance: PREDNISOLONE
     Indication: Rash
     Route: 048
     Dates: start: 20211006, end: 20211013
  24. PREDONINE [Suspect]
     Active Substance: PREDNISOLONE
     Route: 048
     Dates: start: 20211108, end: 20211112
  25. COVID-19 VACCINE [Concomitant]
     Indication: Product used for unknown indication

REACTIONS (11)
  - Stevens-Johnson syndrome [Recovering/Resolving]
  - Hyperglycaemia [Recovered/Resolved]
  - Blister [Unknown]
  - Thyroiditis [Recovered/Resolved]
  - Rash pruritic [Unknown]
  - Erythema [Unknown]
  - Malignant neoplasm progression [Fatal]
  - Gait disturbance [Recovered/Resolved]
  - Dizziness [Recovered/Resolved]
  - Adrenal insufficiency [Recovering/Resolving]
  - Diabetes mellitus inadequate control [Unknown]

NARRATIVE: CASE EVENT DATE: 20201021
